FAERS Safety Report 18398644 (Version 1)
Quarter: 2020Q4

REPORT INFORMATION
  Report Type: Spontaneous
  Country: US (occurrence: US)
  Receive Date: 20201019
  Receipt Date: 20201019
  Transmission Date: 20210114
  Serious: Yes (Other)
  Sender: FDA-Public Use
  Company Number: None

PATIENT
  Age: 14 Year
  Sex: Female
  Weight: 59.8 kg

DRUGS (1)
  1. IRON SUCROSE 20MG/ML [Suspect]
     Active Substance: IRON SUCROSE
     Indication: IRON DEFICIENCY ANAEMIA
     Dosage: ?          OTHER DOSE:300MG IN NS 150 ML;?
     Route: 042
     Dates: start: 20191216

REACTIONS (4)
  - Infusion site vesicles [None]
  - Pyrexia [None]
  - Infusion site erythema [None]
  - Infusion site pain [None]

NARRATIVE: CASE EVENT DATE: 20191220
